FAERS Safety Report 9381030 (Version 2)
Quarter: 2013Q3

REPORT INFORMATION
  Report Type: Spontaneous
  Country: FR (occurrence: FR)
  Receive Date: 20130703
  Receipt Date: 20130807
  Transmission Date: 20140515
  Serious: Yes (Hospitalization)
  Sender: FDA-Public Use
  Company Number: FR-BIOGENIDEC-2013BI058104

PATIENT
  Age: 37 Year
  Sex: Female
  Weight: 61 kg

DRUGS (3)
  1. TYSABRI [Suspect]
     Indication: MULTIPLE SCLEROSIS
     Route: 042
     Dates: start: 200902
  2. LUTERAN [Concomitant]
     Indication: MENORRHAGIA
  3. LEXOMIL [Concomitant]

REACTIONS (1)
  - Atrial fibrillation [Recovered/Resolved]
